FAERS Safety Report 9772454 (Version 1)
Quarter: 2013Q4

REPORT INFORMATION
  Report Type: Spontaneous
  Country: US (occurrence: None)
  Receive Date: 20131218
  Receipt Date: 20131218
  Transmission Date: 20140711
  Serious: Yes (Other)
  Sender: FDA-Public Use
  Company Number: None

PATIENT
  Age: 44 Year
  Sex: Female
  Weight: 72.6 kg

DRUGS (3)
  1. ICLUSIG [Suspect]
     Indication: ACUTE MYELOID LEUKAEMIA
     Route: 048
     Dates: start: 20131018, end: 20131104
  2. MEGESTROL ACETATE TABLET [Suspect]
     Indication: VAGINAL HAEMORRHAGE
     Route: 048
     Dates: start: 20130905, end: 20131104
  3. MEGESTROL ACETATE TABLET [Suspect]
     Indication: UTERINE LEIOMYOMA
     Route: 048
     Dates: start: 20130905, end: 20131104

REACTIONS (4)
  - Headache [None]
  - Back pain [None]
  - Abdominal pain [None]
  - Pulmonary embolism [None]
